FAERS Safety Report 9592344 (Version 4)
Quarter: 2013Q4

REPORT INFORMATION
  Report Type: Report from Study
  Country: CA (occurrence: CA)
  Receive Date: 20131004
  Receipt Date: 20131122
  Transmission Date: 20140711
  Serious: Yes (Other)
  Sender: FDA-Public Use
  Company Number: CA-JNJFOC-20130205584

PATIENT
  Age: 36 Year
  Sex: Female
  Weight: 57 kg

DRUGS (14)
  1. REMICADE [Suspect]
     Indication: CROHN^S DISEASE
     Route: 042
  2. REMICADE [Suspect]
     Indication: CROHN^S DISEASE
     Dosage: 18TH INFUSION
     Route: 042
     Dates: start: 20131101
  3. REMICADE [Suspect]
     Indication: CROHN^S DISEASE
     Dosage: 17TH INFUSION
     Route: 042
     Dates: start: 20110307
  4. CHOLESTYRAMINE [Suspect]
     Indication: CHOLESTASIS
     Route: 065
     Dates: start: 201308
  5. PROBIOTICS [Concomitant]
     Route: 065
  6. PRENATAL VITAMINS [Concomitant]
     Route: 065
  7. CALCIUM [Concomitant]
     Route: 065
  8. FOLIC ACID [Concomitant]
     Route: 065
  9. IRON [Concomitant]
     Route: 065
  10. MULTIVITAMINS [Concomitant]
     Route: 065
  11. VITAMIN D [Concomitant]
     Route: 065
  12. B VITAMIN COMPLEX [Concomitant]
     Route: 065
  13. VITAMIN C [Concomitant]
     Route: 065
  14. FISH OIL [Concomitant]
     Route: 065

REACTIONS (7)
  - Caesarean section [Unknown]
  - Incision site infection [Unknown]
  - Exposure during pregnancy [Recovered/Resolved]
  - Cholestasis [Recovering/Resolving]
  - Incision site complication [Recovering/Resolving]
  - Arthritis [Recovering/Resolving]
  - Eczema [Recovering/Resolving]
